FAERS Safety Report 20159849 (Version 2)
Quarter: 2021Q4

REPORT INFORMATION
  Report Type: Spontaneous
  Country: AT (occurrence: AT)
  Receive Date: 20211208
  Receipt Date: 20211231
  Transmission Date: 20220303
  Serious: Yes (Other)
  Sender: FDA-Public Use
  Company Number: AT-JNJFOC-20211200200

PATIENT
  Age: 41 Year
  Sex: Male
  Weight: 103 kg

DRUGS (4)
  1. SIMPONI [Suspect]
     Active Substance: GOLIMUMAB
     Indication: Psoriatic arthropathy
     Route: 058
     Dates: start: 201412
  2. COLCTAB [Concomitant]
  3. DEFLAMAT [DICLOFENAC SODIUM] [Concomitant]
  4. ALLOPURINOL [Concomitant]
     Active Substance: ALLOPURINOL

REACTIONS (1)
  - COVID-19 [Recovered/Resolved]

NARRATIVE: CASE EVENT DATE: 20210222
